FAERS Safety Report 17841310 (Version 2)
Quarter: 2020Q2

REPORT INFORMATION
  Report Type: Spontaneous
  Country: US (occurrence: US)
  Receive Date: 20200529
  Receipt Date: 20200627
  Transmission Date: 20200714
  Serious: No
  Sender: FDA-Public Use
  Company Number: US-UNITED THERAPEUTICS-UNT-2020-007860

PATIENT
  Age: 38 Year
  Sex: Male
  Weight: 74.38 kg

DRUGS (2)
  1. REMODULIN [Suspect]
     Active Substance: TREPROSTINIL
     Indication: PULMONARY ARTERIAL HYPERTENSION
     Dosage: UNK, CONTINUING
     Route: 058
     Dates: start: 20181105
  2. REMODULIN [Suspect]
     Active Substance: TREPROSTINIL
     Dosage: 0.090 ?G/KG, CONTINUING
     Route: 058

REACTIONS (4)
  - Infusion site extravasation [Unknown]
  - Infusion site pain [Unknown]
  - Unintentional medical device removal [Unknown]
  - Device connection issue [Unknown]

NARRATIVE: CASE EVENT DATE: 202005
